FAERS Safety Report 5588510-5 (Version None)
Quarter: 2008Q1

REPORT INFORMATION
  Report Type: 
  Country: None (occurrence: None)
  Receive Date: 20080111
  Receipt Date: 20080103
  Transmission Date: 20080703
  Serious: Yes (Hospitalization, Other)
  Sender: FDA-Public Use
  Company Number: US-ROCHE-534788

PATIENT
  Age: 54 Year
  Sex: Male

DRUGS (5)
  1. XELODA [Suspect]
     Indication: RECTAL CANCER
     Route: 065
     Dates: end: 20071013
  2. XELODA [Suspect]
     Route: 065
     Dates: start: 20071101, end: 20071119
  3. ZOLPIDEM TARTRATE [Concomitant]
  4. VITAMIN B6 [Concomitant]
  5. IBUPROFEN [Concomitant]

REACTIONS (3)
  - PALMAR-PLANTAR ERYTHRODYSAESTHESIA SYNDROME [None]
  - SKIN OEDEMA [None]
  - STAPHYLOCOCCAL INFECTION [None]
